FAERS Safety Report 13980499 (Version 2)
Quarter: 2017Q3

REPORT INFORMATION
  Report Type: Spontaneous
  Country: US (occurrence: US)
  Receive Date: 20170918
  Receipt Date: 20170921
  Transmission Date: 20171128
  Serious: No
  Sender: FDA-Public Use
  Company Number: US-CELGENEUS-USA-20170903444

PATIENT
  Age: 33 Year
  Sex: Male
  Weight: 95.34 kg

DRUGS (2)
  1. ENTYVIO [Concomitant]
     Active Substance: VEDOLIZUMAB
     Indication: COLITIS ULCERATIVE
     Route: 065
     Dates: start: 201602
  2. OTEZLA [Suspect]
     Active Substance: APREMILAST
     Indication: PSORIASIS
     Dosage: 60 MILLIGRAM
     Route: 048
     Dates: start: 20170308, end: 20170829

REACTIONS (1)
  - Depression [Recovering/Resolving]

NARRATIVE: CASE EVENT DATE: 201706
